FAERS Safety Report 10074112 (Version 2)
Quarter: 2014Q2

REPORT INFORMATION
  Report Type: Report from Study
  Country: TR (occurrence: TR)
  Receive Date: 20140413
  Receipt Date: 20140613
  Transmission Date: 20141212
  Serious: Yes (Other)
  Sender: FDA-Public Use
  Company Number: TR-US-EMD SERONO, INC.-7280806

PATIENT
  Sex: Female
  Weight: 62 kg

DRUGS (6)
  1. BETASERC                           /00141801/ [Concomitant]
     Indication: PRODUCT USED FOR UNKNOWN INDICATION
  2. GABAPENTIN [Concomitant]
     Indication: PRODUCT USED FOR UNKNOWN INDICATION
  3. REBIF [Suspect]
     Indication: MULTIPLE SCLEROSIS
  4. PSEUDOEPHEDRINE W/TRIPROLIDINE [Suspect]
     Indication: DIZZINESS
  5. BENZALKONIUM CHLORIDE [Suspect]
     Indication: PRODUCT USED FOR UNKNOWN INDICATION
  6. LANSOR [Suspect]
     Indication: GASTRIC DISORDER

REACTIONS (3)
  - Major depression [Not Recovered/Not Resolved]
  - Attention deficit/hyperactivity disorder [Not Recovered/Not Resolved]
  - Memory impairment [Not Recovered/Not Resolved]
